FAERS Safety Report 7101147-1 (Version None)
Quarter: 2010Q4

REPORT INFORMATION
  Report Type: 
  Country: None (occurrence: None)
  Receive Date: 20101105
  Receipt Date: 20101022
  Transmission Date: 20110411
  Serious: Yes (Other)
  Sender: FDA-Public Use
  Company Number: OPER20090065

PATIENT
  Age: 19 Year
  Sex: Male

DRUGS (4)
  1. OPANA ER [Suspect]
     Dosage: INHALATION
     Route: 055
     Dates: start: 20090214, end: 20090215
  2. PERCOCET [Suspect]
     Dates: start: 20081001, end: 20090215
  3. XANAX [Suspect]
     Dosage: INHALATION
     Route: 055
     Dates: start: 20090214, end: 20090215
  4. MARIJUANA (CANNABIS SATIVA) [Suspect]
     Dates: start: 20081201, end: 20090215

REACTIONS (5)
  - DRUG ABUSE [None]
  - DRUG DIVERSION [None]
  - EUPHORIC MOOD [None]
  - HOMICIDE [None]
  - INCORRECT ROUTE OF DRUG ADMINISTRATION [None]
